FAERS Safety Report 12118574 (Version 2)
Quarter: 2016Q2

REPORT INFORMATION
  Report Type: Spontaneous
  Country: US (occurrence: US)
  Receive Date: 20160226
  Receipt Date: 20160506
  Transmission Date: 20160815
  Serious: Yes (Hospitalization, Other)
  Sender: FDA-Public Use
  Company Number: US-PFIZER INC-2016114441

PATIENT
  Age: 70 Year
  Sex: Male
  Weight: 84 kg

DRUGS (9)
  1. VFEND [Suspect]
     Active Substance: VORICONAZOLE
     Dosage: 200 MG, 2X/DAY, EVERY 12 HOURS
     Route: 048
  2. FLUCONAZOLE. [Concomitant]
     Active Substance: FLUCONAZOLE
     Indication: LEUKAEMIA
     Dosage: 100 MG, 1X/DAY BY MOUTH
     Route: 048
     Dates: start: 201509
  3. VALACYCLOVIR [Concomitant]
     Active Substance: VALACYCLOVIR HYDROCHLORIDE
     Indication: LEUKAEMIA
     Dosage: 500 MG, 2X/DAY
     Dates: start: 201509
  4. VFEND [Suspect]
     Active Substance: VORICONAZOLE
     Indication: PROPHYLAXIS
     Dosage: 200 MG, 2X/DAY, EVERY 12 HOURS
     Route: 048
     Dates: start: 2016
  5. LISINOPRIL HCTZ [Concomitant]
     Active Substance: HYDROCHLOROTHIAZIDE\LISINOPRIL
     Indication: HYPERTENSION
     Dosage: 20 MG, 1X/DAY BY MOUTH
     Route: 048
  6. LEVOFLOXACIN. [Concomitant]
     Active Substance: LEVOFLOXACIN
     Indication: LEUKAEMIA
     Dosage: 500 MG, 1X/DAY BY MOUTH
     Route: 048
     Dates: start: 201509
  7. ALLOPURINOL. [Concomitant]
     Active Substance: ALLOPURINOL
     Indication: GOUT
     Dosage: 100 MG, 2X/DAY BY MOUTH
     Route: 048
  8. VIDAZA [Concomitant]
     Active Substance: AZACITIDINE
     Indication: LEUKAEMIA
     Dosage: IV FOR 7 DAYS THEN 3 WEEKS OFF
     Route: 042
  9. SOTALOL. [Concomitant]
     Active Substance: SOTALOL
     Indication: ARRHYTHMIA
     Dosage: 80 MG, 2X/DAY BY MOUTH
     Route: 048

REACTIONS (7)
  - Hepatic function abnormal [Recovered/Resolved]
  - Hallucination [Recovered/Resolved]
  - Visual impairment [Recovered/Resolved]
  - Balance disorder [Recovered/Resolved]
  - Abnormal dreams [Recovered/Resolved]
  - Product use issue [Unknown]
  - Visual brightness [Recovered/Resolved]
